FAERS Safety Report 6442503-4 (Version None)
Quarter: 2009Q4

REPORT INFORMATION
  Report Type: 
  Country: None (occurrence: None)
  Receive Date: 20091117
  Receipt Date: 20091112
  Transmission Date: 20100525
  Serious: Yes (Death, Other)
  Sender: FDA-Public Use
  Company Number: US-ASTRAZENECA-2009SE26235

PATIENT
  Age: 910 Month
  Sex: Male
  Weight: 82.6 kg

DRUGS (1)
  1. SEROQUEL [Suspect]
     Route: 048

REACTIONS (3)
  - DEATH [None]
  - PANCREATITIS [None]
  - SUBDURAL HAEMATOMA [None]
